FAERS Safety Report 23936009 (Version 1)
Quarter: 2024Q2

REPORT INFORMATION
  Report Type: Report from Study
  Country: IQ (occurrence: IQ)
  Receive Date: 20240604
  Receipt Date: 20240604
  Transmission Date: 20240716
  Serious: Yes (Other)
  Sender: FDA-Public Use
  Company Number: IQ-BAYER-2024A078820

PATIENT
  Age: 78 Year
  Sex: Male

DRUGS (1)
  1. EYLEA [Suspect]
     Active Substance: AFLIBERCEPT
     Indication: Diabetic retinal oedema
     Dosage: 5TH,INJUCT,MONTHLY, 40 MG/ML, SOLUTION FOR INJECTION
     Dates: start: 202311

REACTIONS (2)
  - Ocular hypertension [Recovering/Resolving]
  - Erythema [Recovering/Resolving]

NARRATIVE: CASE EVENT DATE: 20240527
